FAERS Safety Report 22198037 (Version 1)
Quarter: 2023Q2

REPORT INFORMATION
  Report Type: Spontaneous
  Country: CA (occurrence: CA)
  Receive Date: 20230411
  Receipt Date: 20230411
  Transmission Date: 20230721
  Serious: Yes (Hospitalization)
  Sender: FDA-Public Use
  Company Number: CA-PFIZER INC-202300147283

PATIENT
  Age: 82 Year
  Sex: Male
  Weight: 75 kg

DRUGS (23)
  1. BORTEZOMIB [Interacting]
     Active Substance: BORTEZOMIB
     Indication: Plasma cell myeloma
     Dosage: 2.8 MG, WEEKLY
     Route: 058
  2. CYCLOPHOSPHAMIDE [Interacting]
     Active Substance: CYCLOPHOSPHAMIDE
     Indication: Plasma cell myeloma
     Dosage: 500 MG, WEEKLY
     Route: 048
  3. ALENDRONATE [Concomitant]
     Active Substance: ALENDRONATE SODIUM
  4. ALLOPURINOL [Concomitant]
     Active Substance: ALLOPURINOL
  5. AMLODIPINE [Concomitant]
     Active Substance: AMLODIPINE BESYLATE
     Route: 065
  6. ASPIRIN [Concomitant]
     Active Substance: ASPIRIN
  7. CALCIUM [Concomitant]
     Active Substance: CALCIUM
  8. DEXAMETHASONE [Concomitant]
     Active Substance: DEXAMETHASONE
     Route: 065
  9. DOCUSATE [Concomitant]
     Active Substance: DOCUSATE
  10. DUTASTERIDE [Concomitant]
     Active Substance: DUTASTERIDE
  11. ERYTHROPOIETIN [Concomitant]
     Active Substance: ERYTHROPOIETIN
  12. HUMULINE [Concomitant]
  13. METOPROLOL [Concomitant]
     Active Substance: METOPROLOL
  14. MIRTAZAPINE [Concomitant]
     Active Substance: MIRTAZAPINE
  15. NOVORAPID [Concomitant]
     Active Substance: INSULIN ASPART
  16. OXAZEPAM [Concomitant]
     Active Substance: OXAZEPAM
  17. PANTOPRAZOLE [Concomitant]
     Active Substance: PANTOPRAZOLE
  18. POLYETHYLENE GLYCOLS [Concomitant]
     Active Substance: POLYETHYLENE GLYCOLS
  19. PRAVASTATIN SODIUM [Concomitant]
     Active Substance: PRAVASTATIN SODIUM
  20. PROCHLORPERAZINE [Concomitant]
     Active Substance: PROCHLORPERAZINE
  21. LINAGLIPTIN [Concomitant]
     Active Substance: LINAGLIPTIN
  22. VALACYCLOVIR [Concomitant]
     Active Substance: VALACYCLOVIR HYDROCHLORIDE
  23. ERGOCALCIFEROL [Concomitant]
     Active Substance: ERGOCALCIFEROL

REACTIONS (4)
  - Dehydration [Recovered/Resolved]
  - Diarrhoea [Recovered/Resolved]
  - Drug interaction [Recovered/Resolved]
  - General physical health deterioration [Recovered/Resolved]
